FAERS Safety Report 7483562-X (Version None)
Quarter: 2011Q2

REPORT INFORMATION
  Report Type: 
  Country: None (occurrence: None)
  Receive Date: 20110517
  Receipt Date: 20110511
  Transmission Date: 20111010
  Serious: No
  Sender: FDA-Public Use
  Company Number: US-PFIZER INC-2011104263

PATIENT
  Sex: Female

DRUGS (3)
  1. ACETAMINOPHEN [Suspect]
     Dosage: UNK
  2. PROPACET 100 [Suspect]
     Dosage: UNK
  3. LYRICA [Suspect]
     Dosage: 100-200 MG ONCE DAILY
     Route: 048
     Dates: start: 20080310

REACTIONS (1)
  - DRUG HYPERSENSITIVITY [None]
